FAERS Safety Report 9814818 (Version 6)
Quarter: 2014Q2

REPORT INFORMATION
  Report Type: Spontaneous
  Country: US (occurrence: US)
  Receive Date: 20140113
  Receipt Date: 20140410
  Transmission Date: 20141212
  Serious: Yes (Hospitalization)
  Sender: FDA-Public Use
  Company Number: US-GLAXOSMITHKLINE-A1025410A

PATIENT
  Age: 66 Year
  Sex: Male

DRUGS (5)
  1. FLOLAN [Suspect]
     Indication: COR PULMONALE CHRONIC
     Dosage: 10NGKM UNKNOWN
     Route: 065
     Dates: start: 20130421
  2. COUMADIN [Concomitant]
  3. REVATIO [Concomitant]
  4. SILDENAFIL [Concomitant]
  5. WARFARIN [Concomitant]

REACTIONS (20)
  - Myocardial infarction [Unknown]
  - Stent placement [Unknown]
  - Investigation [Unknown]
  - Cardiac failure congestive [Unknown]
  - Device related infection [Unknown]
  - Vomiting [Unknown]
  - Nausea [Unknown]
  - Pain in jaw [Unknown]
  - Epistaxis [Unknown]
  - Dizziness [Unknown]
  - Diarrhoea [Unknown]
  - Malaise [Unknown]
  - Headache [Unknown]
  - Infusion site erythema [Not Recovered/Not Resolved]
  - Dyspnoea [Unknown]
  - Infection [Unknown]
  - Pulmonary arterial hypertension [Unknown]
  - Pulmonary hypertension [Unknown]
  - Catheter removal [Unknown]
  - Central venous catheterisation [Unknown]
